FAERS Safety Report 6582748-6 (Version None)
Quarter: 2010Q1

REPORT INFORMATION
  Report Type: 
  Country: None (occurrence: None)
  Receive Date: 20100216
  Receipt Date: 20100205
  Transmission Date: 20100710
  Serious: Yes (Other)
  Sender: FDA-Public Use
  Company Number: BR-PFIZER INC-2009313952

PATIENT
  Age: 75 Year
  Sex: Female
  Weight: 58 kg

DRUGS (16)
  1. CHAMPIX [Suspect]
     Indication: TOBACCO USER
     Dosage: 1 MG, EVERY 12 HOURS
     Route: 048
     Dates: start: 20091219, end: 20100120
  2. BALCOR [Concomitant]
     Dosage: UNK
  3. BACTRIN [Concomitant]
     Dosage: UNK
  4. BUFERIN [Concomitant]
     Dosage: UNK
  5. DIGOXIN [Concomitant]
     Dosage: UNK
  6. LASIX [Concomitant]
     Dosage: UNK
  7. ALDACTONE [Concomitant]
     Dosage: UNK
  8. SACCHAROMYCES BOULARDII [Concomitant]
     Dosage: UNK
  9. SPIRIVA [Concomitant]
     Dosage: UNK
  10. LEXOTAN [Concomitant]
     Dosage: UNK
  11. FORASEQ [Concomitant]
     Dosage: UNK
  12. LOSARTAN [Concomitant]
     Dosage: UNK
  13. VENLAFAXINE [Concomitant]
     Dosage: UNK
  14. CILOSTAZOL [Concomitant]
     Dosage: UNK
  15. CARDIZEM [Concomitant]
     Dosage: UNK
  16. PLAVIX [Concomitant]
     Dosage: UNK

REACTIONS (14)
  - ABDOMINAL DISCOMFORT [None]
  - ASTHENIA [None]
  - DECREASED APPETITE [None]
  - DEPRESSED MOOD [None]
  - DEPRESSION [None]
  - DIARRHOEA [None]
  - INTERSTITIAL LUNG DISEASE [None]
  - LIMB DISCOMFORT [None]
  - NAUSEA [None]
  - PAIN IN EXTREMITY [None]
  - PYREXIA [None]
  - SOMNOLENCE [None]
  - TREMOR [None]
  - WEIGHT DECREASED [None]
